FAERS Safety Report 23457619 (Version 3)
Quarter: 2025Q1

REPORT INFORMATION
  Report Type: Spontaneous
  Country: FI (occurrence: FI)
  Receive Date: 20240130
  Receipt Date: 20250317
  Transmission Date: 20250409
  Serious: Yes (Other)
  Sender: PFIZER
  Company Number: FI-PFIZER INC-PV202400009317

PATIENT
  Age: 56 Year
  Sex: Female
  Weight: 92 kg

DRUGS (3)
  1. ESTRING [Suspect]
     Active Substance: ESTRADIOL
     Indication: Menopausal symptoms
     Dosage: TO BE REPLACED EVERY THREE MONTHS
  2. ROSUVASTATIN [Concomitant]
     Active Substance: ROSUVASTATIN
  3. JARDIANCE [Concomitant]
     Active Substance: EMPAGLIFLOZIN

REACTIONS (3)
  - Device difficult to use [Recovered/Resolved]
  - Device use issue [Recovered/Resolved]
  - Weight increased [Unknown]

NARRATIVE: CASE EVENT DATE: 20240101
